FAERS Safety Report 7729465-4 (Version None)
Quarter: 2011Q3

REPORT INFORMATION
  Report Type: 
  Country: None (occurrence: None)
  Receive Date: 20110906
  Receipt Date: 20110901
  Transmission Date: 20111222
  Serious: Yes (Other)
  Sender: FDA-Public Use
  Company Number: DE-SANOFI-AVENTIS-2011SA056240

PATIENT
  Age: 78 Year
  Sex: Female

DRUGS (1)
  1. MULTAQ [Suspect]
     Route: 048
     Dates: start: 20101101

REACTIONS (5)
  - CHOLELITHIASIS [None]
  - ABDOMINAL PAIN UPPER [None]
  - PANCREATIC ENZYMES INCREASED [None]
  - HEPATIC ENZYME INCREASED [None]
  - PANCREATITIS RELAPSING [None]
